FAERS Safety Report 17463722 (Version 1)
Quarter: 2020Q1

REPORT INFORMATION
  Report Type: Spontaneous
  Country: SE (occurrence: SE)
  Receive Date: 20200226
  Receipt Date: 20200226
  Transmission Date: 20200409
  Serious: Yes (Hospitalization)
  Sender: FDA-Public Use
  Company Number: NVSC2020SE047263

PATIENT
  Age: 29 Year
  Sex: Female

DRUGS (6)
  1. QUETIAPINE. [Suspect]
     Active Substance: QUETIAPINE
     Indication: PRODUCT USED FOR UNKNOWN INDICATION
     Dosage: UNK (24X25MG=600 MG, INTAG IG?R KL 23 H?LFTEN, OCH ANDRA H?LFTEN KL 17-18)
     Route: 048
     Dates: start: 20180818, end: 20180819
  2. LERGIGAN MITE (PROMETHAZINE HYDROCHLORIDE) [Suspect]
     Active Substance: PROMETHAZINE HYDROCHLORIDE
     Indication: PRODUCT USED FOR UNKNOWN INDICATION
     Dosage: UNK (5X5 MG=25 MG. INTAG IG?R KL 23 H?LFTEN, OCH ANDRA H?LFTEN KL 17-18)
     Route: 048
     Dates: start: 20180818, end: 20180819
  3. THERALEN [Suspect]
     Active Substance: TRIMEPRAZINE
     Indication: PRODUCT USED FOR UNKNOWN INDICATION
     Dosage: UNK (25 THERALEN, INTAG IG?R KL 23 H?LFTEN, OCH ANDRA H?LFTEN KL 17-18)
     Route: 048
     Dates: start: 20180818, end: 20180819
  4. OLANZAPINE. [Suspect]
     Active Substance: OLANZAPINE
     Indication: PRODUCT USED FOR UNKNOWN INDICATION
     Dosage: (24X2,5 MG= 60 MG. INTAG IG?R KL 23 H?LFTEN, OCH ANDRA H?LFTEN KL 17-18)
     Route: 048
     Dates: start: 20180818, end: 20180819
  5. OXASCAND [Suspect]
     Active Substance: OXAZEPAM
     Indication: PRODUCT USED FOR UNKNOWN INDICATION
     Dosage: UNK (20X5 MG=100 MG. INTAG IG?R KL 23 H?LFTEN, OCH ANDRA H?LFTEN KL 17-18)
     Route: 048
     Dates: start: 20180818, end: 20180819
  6. PROPAVAN [Suspect]
     Active Substance: PROPIOMAZINE
     Indication: PRODUCT USED FOR UNKNOWN INDICATION
     Dosage: UNK (500 MG, INTAG IG?R KL 23 H?LFTEN, OCH ANDRA H?LFTEN KL 17-18)
     Route: 048
     Dates: start: 20180818, end: 20180819

REACTIONS (2)
  - Intentional self-injury [Unknown]
  - Intentional overdose [Unknown]

NARRATIVE: CASE EVENT DATE: 20180818
